FAERS Safety Report 9765034 (Version 1)
Quarter: 2013Q4

REPORT INFORMATION
  Report Type: Spontaneous
  Country: US (occurrence: None)
  Receive Date: 20131213
  Receipt Date: 20131213
  Transmission Date: 20140711
  Serious: Yes (Other)
  Sender: FDA-Public Use
  Company Number: 2013SA025810

PATIENT
  Sex: Female

DRUGS (3)
  1. CAPZASIN HP CREME [Suspect]
     Indication: PRODUCT USED FOR UNKNOWN INDICATION
     Route: 061
  2. CRESTOR [Concomitant]
  3. ASPIRIN [Concomitant]

REACTIONS (4)
  - Thermal burn [None]
  - Blister [None]
  - Pain [None]
  - Insomnia [None]
